FAERS Safety Report 15803682 (Version 6)
Quarter: 2019Q4

REPORT INFORMATION
  Report Type: Report from Study
  Country: US (occurrence: US)
  Receive Date: 20190109
  Receipt Date: 20191008
  Transmission Date: 20200122
  Serious: Yes (Hospitalization)
  Sender: FDA-Public Use
  Company Number: US-ACTELION-A-US2018-175646

PATIENT
  Age: 3 Year
  Sex: Male
  Weight: 13.15 kg

DRUGS (9)
  1. REVATIO [Concomitant]
     Active Substance: SILDENAFIL CITRATE
     Dosage: 14 MG, Q6HRS
     Dates: start: 2017
  2. TRACLEER [Suspect]
     Active Substance: BOSENTAN
     Indication: PULMONARY HYPERTENSION
     Dosage: 32.5 MG, BID
     Route: 048
     Dates: start: 201805
  3. ALBUTEROL. [Concomitant]
     Active Substance: ALBUTEROL
     Dosage: 20 MG, Q 6HOURS PRN
     Route: 055
  4. ALBUTEROL. [Concomitant]
     Active Substance: ALBUTEROL
     Dosage: UNK UNK, PRN
  5. ZANTAC [Concomitant]
     Active Substance: RANITIDINE HYDROCHLORIDE
     Dosage: 19.5 MG, Q12HRS
  6. CHOLECALCIFEROL [Concomitant]
     Active Substance: CHOLECALCIFEROL
     Dosage: 140 U/ML 0.5ML QD
  7. PULMICORT TURBUHALER [Concomitant]
     Active Substance: BUDESONIDE
     Dosage: UNK, BID
  8. PERMETHRIN. [Concomitant]
     Active Substance: PERMETHRIN
     Dosage: 170 UNK, UNK
  9. TRACLEER [Suspect]
     Active Substance: BOSENTAN
     Dosage: 62.5 MG, BID
     Route: 048

REACTIONS (14)
  - Viral infection [Unknown]
  - Bronchopulmonary dysplasia [Recovering/Resolving]
  - Asthma [Unknown]
  - Hypoxia [Unknown]
  - Cough [Not Recovered/Not Resolved]
  - Rhinorrhoea [Not Recovered/Not Resolved]
  - Respiratory distress [Unknown]
  - Hospitalisation [Unknown]
  - Wheezing [Recovering/Resolving]
  - Acute respiratory failure [Unknown]
  - Dyspnoea [Recovering/Resolving]
  - Malaise [Not Recovered/Not Resolved]
  - Pyrexia [Unknown]
  - Upper respiratory tract infection [Not Recovered/Not Resolved]

NARRATIVE: CASE EVENT DATE: 20181217
